FAERS Safety Report 13380636 (Version 3)
Quarter: 2017Q2

REPORT INFORMATION
  Report Type: Spontaneous
  Country: IT (occurrence: IT)
  Receive Date: 20170329
  Receipt Date: 20170404
  Transmission Date: 20170830
  Serious: Yes (Hospitalization)
  Sender: FDA-Public Use
  Company Number: IT-ROCHE-1912445

PATIENT
  Age: 8 Year
  Sex: Male
  Weight: 27 kg

DRUGS (7)
  1. CEFTRIAXONE. [Suspect]
     Active Substance: CEFTRIAXONE
     Indication: MENINGOENCEPHALITIS HERPETIC
     Dosage: DAILY
     Route: 042
     Dates: start: 20170302, end: 20170313
  2. ACYCLOVIR. [Suspect]
     Active Substance: ACYCLOVIR
     Indication: MENINGOENCEPHALITIS HERPETIC
     Dosage: DAILY
     Route: 042
     Dates: start: 20170302, end: 20170317
  3. ACYCLOVIR. [Suspect]
     Active Substance: ACYCLOVIR
     Route: 048
     Dates: end: 20170322
  4. IBUPROFEN. [Concomitant]
     Active Substance: IBUPROFEN
     Indication: PYREXIA
     Route: 048
     Dates: start: 20170305, end: 20170308
  5. OMEPRAZOLE. [Concomitant]
     Active Substance: OMEPRAZOLE
     Indication: PROPHYLAXIS
     Route: 042
     Dates: start: 20170309, end: 20170317
  6. FLUCONAZOLE. [Suspect]
     Active Substance: FLUCONAZOLE
     Indication: OESOPHAGEAL CANDIDIASIS
     Dosage: DAILY
     Route: 048
     Dates: start: 20170310, end: 20170323
  7. ACYCLOVIR. [Suspect]
     Active Substance: ACYCLOVIR
     Route: 065
     Dates: start: 20170331

REACTIONS (2)
  - Cholelithiasis [Unknown]
  - Hypercholesterolaemia [Unknown]

NARRATIVE: CASE EVENT DATE: 20170320
